FAERS Safety Report 18817372 (Version 1)
Quarter: 2021Q1

REPORT INFORMATION
  Report Type: Not Available
  Country: None (occurrence: None)
  Receive Date: 20210201
  Receipt Date: 20210201
  Transmission Date: 20210419
  Serious: Yes (Other)
  Sender: FDA-Public Use
  Company Number: US-AKORN-156746

PATIENT
  Age: 77 Year
  Sex: Female

DRUGS (1)
  1. THERATEARS LUBRICANT [Suspect]
     Active Substance: CARBOXYMETHYLCELLULOSE SODIUM

REACTIONS (7)
  - Eye infection [None]
  - Eye pruritus [None]
  - Foreign body sensation in eyes [None]
  - Lacrimation increased [None]
  - Eyelid folliculitis [None]
  - Vision blurred [None]
  - Eye irritation [None]
